FAERS Safety Report 4480813-0 (Version None)
Quarter: 2004Q4

REPORT INFORMATION
  Report Type: 
  Country: None (occurrence: None)
  Receive Date: 20041019
  Receipt Date: 20041008
  Transmission Date: 20050328
  Serious: Yes (Hospitalization)
  Sender: FDA-Public Use
  Company Number: 2004228977US

PATIENT
  Age: 68 Year
  Sex: Male

DRUGS (6)
  1. CAMPTOSAR [Suspect]
     Indication: COLORECTAL CANCER METASTATIC
     Dosage: 180 MG/M2, CYCLIC, IV
     Route: 042
     Dates: start: 20040602, end: 20040616
  2. LOMOTIL [Suspect]
     Indication: DIARRHOEA
     Route: 042
  3. CETUXIMAB (CETUXIMAB) [Suspect]
     Indication: COLORECTAL CANCER METASTATIC
     Dosage: 250 MG/M2 CYCLIC, IV
     Route: 042
     Dates: start: 20040602, end: 20040623
  4. FLUOROURACIL [Suspect]
     Indication: COLORECTAL CANCER METASTATIC
     Dosage: 2400 MG/M2, CYCLIC, IV
     Route: 042
     Dates: start: 20040602, end: 20040616
  5. LEUCOVORIN CALCIUM [Suspect]
     Indication: COLORECTAL CANCER METASTATIC
     Dosage: 400 MG/M2, CYCLIC, IV
     Route: 042
     Dates: start: 20040602, end: 20040616
  6. IMODIUM [Suspect]
     Indication: DIARRHOEA

REACTIONS (5)
  - ABDOMINAL DISTENSION [None]
  - ABDOMINAL PAIN [None]
  - COLONIC OBSTRUCTION [None]
  - DIARRHOEA [None]
  - SMALL INTESTINAL OBSTRUCTION [None]
